FAERS Safety Report 11338399 (Version 1)
Quarter: 2015Q3

REPORT INFORMATION
  Report Type: Spontaneous
  Country: US (occurrence: US)
  Receive Date: 20150803
  Receipt Date: 20150803
  Transmission Date: 20151125
  Serious: No
  Sender: FDA-Public Use
  Company Number: US-ELI_LILLY_AND_COMPANY-US200707002185

PATIENT
  Age: 10 Year
  Sex: Male

DRUGS (2)
  1. STRATTERA [Suspect]
     Active Substance: ATOMOXETINE HYDROCHLORIDE
     Indication: ATTENTION DEFICIT/HYPERACTIVITY DISORDER
     Dosage: 18 MG, UNK
     Route: 048
     Dates: start: 20070302, end: 20070513
  2. STRATTERA [Suspect]
     Active Substance: ATOMOXETINE HYDROCHLORIDE
     Dosage: 25 MG, UNK
     Route: 048
     Dates: start: 20070514, end: 20070518

REACTIONS (11)
  - Somnolence [Recovered/Resolved]
  - White blood cell count decreased [Recovered/Resolved]
  - Lymphocyte percentage decreased [Recovered/Resolved]
  - Monocyte percentage increased [Recovered/Resolved]
  - Alanine aminotransferase decreased [Recovered/Resolved]
  - Aspartate aminotransferase increased [Recovered/Resolved]
  - Lymphocyte percentage increased [Recovered/Resolved]
  - Lymphocyte count decreased [Recovered/Resolved]
  - Blood bilirubin unconjugated increased [Recovered/Resolved]
  - Asthenia [Recovered/Resolved]
  - Blood urea nitrogen/creatinine ratio increased [Recovered/Resolved]

NARRATIVE: CASE EVENT DATE: 20070518
